FAERS Safety Report 7108625-X (Version None)
Quarter: 2010Q4

REPORT INFORMATION
  Report Type: 
  Country: None (occurrence: None)
  Receive Date: 20101115
  Receipt Date: 20101115
  Transmission Date: 20110411
  Serious: Yes (Other)
  Sender: FDA-Public Use
  Company Number: None

PATIENT
  Sex: Male
  Weight: 106.4 kg

DRUGS (13)
  1. RISPERIDONE [Suspect]
     Indication: BIPOLAR DISORDER
     Dosage: 2 MG BID ORAL
     Route: 048
     Dates: start: 20100820, end: 20100824
  2. LEVEMIR [Concomitant]
  3. APRIDRA [Concomitant]
  4. DEPAKOTE [Concomitant]
  5. DEPAKOTE [Concomitant]
  6. HALDOL [Concomitant]
  7. LITHIUM CARBONATE [Concomitant]
  8. TRILEPTAL [Concomitant]
  9. TRILEPTAL [Concomitant]
  10. COGENTIN [Concomitant]
  11. LISINOPRIL [Concomitant]
  12. ASPIRIN [Concomitant]
  13. ESKALITH [Concomitant]

REACTIONS (4)
  - ATAXIA [None]
  - DROOLING [None]
  - DYSARTHRIA [None]
  - SALIVARY HYPERSECRETION [None]
